FAERS Safety Report 5854123-0 (Version None)
Quarter: 2008Q3

REPORT INFORMATION
  Report Type: 
  Country: None (occurrence: None)
  Receive Date: 20080822
  Receipt Date: 20080819
  Transmission Date: 20090109
  Serious: Yes (Hospitalization, Other)
  Sender: FDA-Public Use
  Company Number: US-ALLERGAN-0810330US

PATIENT
  Sex: Male

DRUGS (2)
  1. SANCTURA XR [Suspect]
     Indication: POSTOPERATIVE CARE
     Dosage: 60 MG, SINGLE
     Route: 048
     Dates: start: 20080817
  2. BACRIM [Suspect]
     Indication: DRUG USE FOR UNKNOWN INDICATION

REACTIONS (2)
  - DRUG INTERACTION [None]
  - RENAL FAILURE ACUTE [None]
